FAERS Safety Report 16016392 (Version 1)
Quarter: 2019Q1

REPORT INFORMATION
  Report Type: Spontaneous
  Country: US (occurrence: US)
  Receive Date: 20190227
  Receipt Date: 20190227
  Transmission Date: 20190418
  Serious: Yes (Disabling)
  Sender: FDA-Public Use
  Company Number: None

PATIENT
  Age: 41 Year
  Sex: Female
  Weight: 51.75 kg

DRUGS (6)
  1. TRAZODONE [Concomitant]
     Active Substance: TRAZODONE HYDROCHLORIDE
  2. LEVAQUIN [Suspect]
     Active Substance: LEVOFLOXACIN
     Indication: CELLULITIS
     Route: 042
     Dates: end: 20190103
  3. TAMOXIFEN [Concomitant]
     Active Substance: TAMOXIFEN
  4. CITALOPRAM [Concomitant]
     Active Substance: CITALOPRAM HYDROBROMIDE
  5. DEXADRINE [Concomitant]
  6. GABAPENTIN. [Concomitant]
     Active Substance: GABAPENTIN

REACTIONS (12)
  - Post procedural complication [None]
  - Neuropathy peripheral [None]
  - Infusion related reaction [None]
  - Nerve injury [None]
  - Toxicity to various agents [None]
  - Paraesthesia [None]
  - Palpitations [None]
  - Nervous system disorder [None]
  - Nephropathy toxic [None]
  - Feeling hot [None]
  - Hyperhidrosis [None]
  - Post procedural cellulitis [None]

NARRATIVE: CASE EVENT DATE: 20181219
